FAERS Safety Report 22032054 (Version 2)
Quarter: 2023Q1

REPORT INFORMATION
  Report Type: Spontaneous
  Country: TR (occurrence: TR)
  Receive Date: 20230224
  Receipt Date: 20230328
  Transmission Date: 20230418
  Serious: Yes (Congenital Anomaly)
  Sender: FDA-Public Use
  Company Number: TR-ABBVIE-4317587

PATIENT

DRUGS (1)
  1. HUMIRA [Suspect]
     Active Substance: ADALIMUMAB
     Indication: Maternal exposure timing unspecified
     Dosage: STRENGTH: 40 MILLIGRAM
     Route: 064

REACTIONS (2)
  - Limb asymmetry [Not Recovered/Not Resolved]
  - Foetal exposure during pregnancy [Unknown]
